FAERS Safety Report 8899189 (Version 1)
Quarter: 2012Q4

REPORT INFORMATION
  Report Type: 
  Country: US (occurrence: US)
  Receive Date: 20121109
  Receipt Date: 20121109
  Transmission Date: 20130627
  Serious: Yes (Other)
  Sender: FDA-Public Use
  Company Number: CHPA2012US010527

PATIENT
  Sex: Female

DRUGS (2)
  1. MAALOX UNKNOWN [Suspect]
     Indication: GASTROOESOPHAGEAL REFLUX DISEASE
     Dosage: 4 to 6 per day as needed
     Route: 048
     Dates: start: 2002, end: 2012
  2. PROTONIX [Concomitant]
     Dosage: UNK, UNK

REACTIONS (3)
  - Breast cancer [Not Recovered/Not Resolved]
  - Therapeutic response unexpected [Unknown]
  - Off label use [Unknown]
